FAERS Safety Report 5961514-6 (Version None)
Quarter: 2008Q4

REPORT INFORMATION
  Report Type: 
  Country: None (occurrence: None)
  Receive Date: 20081121
  Receipt Date: 20081119
  Transmission Date: 20090506
  Serious: Yes (Death)
  Sender: FDA-Public Use
  Company Number: US-JNJFOC-20081105025

PATIENT

DRUGS (1)
  1. LEVAQUIN [Suspect]
     Indication: PNEUMONIA
     Dosage: FOR 8 TO 10 DAYS
     Route: 065

REACTIONS (2)
  - DEATH [None]
  - PULMONARY MYCOSIS [None]
